FAERS Safety Report 7236450-8 (Version None)
Quarter: 2011Q1

REPORT INFORMATION
  Report Type: 
  Country: None (occurrence: None)
  Receive Date: 20110120
  Receipt Date: 20101229
  Transmission Date: 20110831
  Serious: Yes (Hospitalization, Other)
  Sender: FDA-Public Use
  Company Number: PHHY2010ME83791

PATIENT
  Sex: Female

DRUGS (4)
  1. DEXASON [Concomitant]
  2. VELCADE [Concomitant]
     Dosage: 2 MG
  3. THALIDOMIDE [Concomitant]
  4. ZOMETA [Suspect]
     Indication: MUSCULOSKELETAL DISORDER
     Dosage: 4 MG, QMO
     Dates: start: 20081023, end: 20100909

REACTIONS (6)
  - OSTEOMYELITIS [None]
  - GINGIVAL ABSCESS [None]
  - OSTEONECROSIS OF JAW [None]
  - C-REACTIVE PROTEIN INCREASED [None]
  - BLOOD FIBRINOGEN INCREASED [None]
  - PAIN IN JAW [None]
